FAERS Safety Report 4779176-2 (Version None)
Quarter: 2005Q3

REPORT INFORMATION
  Report Type: 
  Country: None (occurrence: None)
  Receive Date: 20050923
  Receipt Date: 20050912
  Transmission Date: 20060218
  Serious: Yes (Hospitalization)
  Sender: FDA-Public Use
  Company Number: 2005PV000738

PATIENT
  Age: 70 Year
  Sex: Male
  Weight: 119.296 kg

DRUGS (9)
  1. SYMLIN [Suspect]
     Dosage: 120 MCG; BID; SC; 60 MCG; BID; SC; 15 MCG; BID; SC
     Route: 058
     Dates: start: 20050523, end: 20050525
  2. SYMLIN [Suspect]
     Dosage: 120 MCG; BID; SC; 60 MCG; BID; SC; 15 MCG; BID; SC
     Route: 058
     Dates: start: 20050526, end: 20050528
  3. SYMLIN [Suspect]
     Dosage: 120 MCG; BID; SC; 60 MCG; BID; SC; 15 MCG; BID; SC
     Route: 058
     Dates: start: 20050529, end: 20050801
  4. NPH INSULIN [Concomitant]
  5. METFORMIN [Concomitant]
  6. CLONIDINE [Concomitant]
  7. LASIX [Concomitant]
  8. POTASSIUM CHLORIDE [Concomitant]
  9. LIPITOR [Concomitant]

REACTIONS (4)
  - BURSITIS [None]
  - FLUID RETENTION [None]
  - INJECTION SITE PAIN [None]
  - PAIN IN EXTREMITY [None]
